FAERS Safety Report 11899502 (Version 3)
Quarter: 2016Q1

REPORT INFORMATION
  Report Type: Spontaneous
  Country: US (occurrence: US)
  Receive Date: 20160108
  Receipt Date: 20160229
  Transmission Date: 20160526
  Serious: Yes (Death, Hospitalization, Other)
  Sender: FDA-Public Use
  Company Number: US-SMITH AND NEPHEW, INC-2015SMT00698

PATIENT
  Age: 57 Year
  Sex: Male
  Weight: 129.25 kg

DRUGS (35)
  1. REGRANEX [Suspect]
     Active Substance: BECAPLERMIN
     Indication: ULCER
     Dosage: UNK
     Dates: start: 201508
  2. PROZAC [Concomitant]
     Active Substance: FLUOXETINE HYDROCHLORIDE
     Dosage: 40 MG, 1X/DAY
     Route: 048
  3. THIAMINE. [Concomitant]
     Active Substance: THIAMINE
     Dosage: 500 MG, 3X/DAY
     Route: 042
  4. VENTOLIN HFA [Concomitant]
     Active Substance: ALBUTEROL SULFATE
     Dosage: 2 DOSAGE UNITS, 4X/DAY
  5. MIRTAZAPINE. [Concomitant]
     Active Substance: MIRTAZAPINE
     Dosage: 45 MG, 1X/DAY
     Route: 048
  6. VITAMIN D [Concomitant]
     Active Substance: CHOLECALCIFEROL
     Dosage: 1000 IU, 1X/DAY
     Route: 048
  7. PLAVIX [Concomitant]
     Active Substance: CLOPIDOGREL BISULFATE
     Dosage: 75 MG, 1X/DAY
     Route: 048
  8. DIOVAN [Concomitant]
     Active Substance: VALSARTAN
     Dosage: 320 MG, 1X/DAY
     Route: 048
  9. VITAMIN C [Concomitant]
     Active Substance: ASCORBIC ACID
     Dosage: 500 MG, 1X/DAY
     Route: 048
  10. SYMBICORT [Concomitant]
     Active Substance: BUDESONIDE\FORMOTEROL FUMARATE DIHYDRATE
     Dosage: 2 DOSAGE UNITS, 2X/DAY
  11. HUMALOG [Concomitant]
     Active Substance: INSULIN LISPRO
     Dosage: UNK, 4X/DAY
     Route: 058
  12. GABAPENTIN. [Concomitant]
     Active Substance: GABAPENTIN
     Dosage: 100 MG, 3X/DAY
  13. ZETIA [Concomitant]
     Active Substance: EZETIMIBE
     Dosage: 10 MG, 1X/DAY
     Route: 048
  14. ROXICODONE [Concomitant]
     Active Substance: OXYCODONE HYDROCHLORIDE
     Dosage: 30 MG, EVERY 6 HOURS PRN
     Route: 048
  15. HEPARIN [Concomitant]
     Active Substance: HEPARIN SODIUM
     Dosage: 5000 U, 2X/DAY
     Route: 058
  16. ALBUTEROL-IPRATROPIUM [Concomitant]
  17. LABETALOL [Concomitant]
     Active Substance: LABETALOL\LABETALOL HYDROCHLORIDE
     Dosage: 10 MG, UNK
     Route: 042
  18. DEXTROSE 10% [Concomitant]
     Dosage: 1000 ML, UNK
  19. PROZAC [Concomitant]
     Active Substance: FLUOXETINE HYDROCHLORIDE
     Dosage: 20 UNK, UNK
     Route: 048
  20. RESTORIL [Concomitant]
     Active Substance: TEMAZEPAM
     Dosage: 30 MG, AT BEDTIME PRN
     Route: 048
  21. PROPOFOL. [Concomitant]
     Active Substance: PROPOFOL
     Dosage: 1000 MG, UNK
  22. HYDROCHLOROTHIAZIDE. [Concomitant]
     Active Substance: HYDROCHLOROTHIAZIDE
     Dosage: 25 MG, 1X/DAY
     Route: 048
  23. SOMA [Concomitant]
     Active Substance: CARISOPRODOL
     Dosage: 350 MG, EVERY 6 HOURS
     Route: 048
  24. VICTOZA [Concomitant]
     Active Substance: LIRAGLUTIDE
     Dosage: 1.8 MG, 1X/DAY
     Route: 058
  25. ACTOS [Concomitant]
     Active Substance: PIOGLITAZONE HYDROCHLORIDE
     Dosage: 15 MG, 1X/DAY
     Route: 048
  26. TENORMIN [Concomitant]
     Active Substance: ATENOLOL
     Dosage: 100 MG, 1X/DAY
     Route: 048
  27. MS CONTIN [Concomitant]
     Active Substance: MORPHINE SULFATE
     Dosage: 200 MG, 2X/DAY
  28. VANCOMYCIN [Concomitant]
     Active Substance: VANCOMYCIN
     Dosage: 2 UNK, 2X/DAY
     Route: 042
  29. METFORMIN [Concomitant]
     Active Substance: METFORMIN HYDROCHLORIDE
     Dosage: 500 MG, 2X/DAY
     Route: 048
  30. ASPIRIN. [Concomitant]
     Active Substance: ASPIRIN
     Dosage: 81 MG, 1X/DAY
     Route: 048
  31. LANTUS [Concomitant]
     Active Substance: INSULIN GLARGINE
     Dosage: 45 U, 1X/DAY
     Route: 058
  32. ^DEPRO/TESTOSTIRONE^ [Concomitant]
     Dosage: 0.5 ML, 1X/WEEK
     Route: 030
  33. VITAMIN B12 [Concomitant]
     Active Substance: CYANOCOBALAMIN
     Dosage: 100 ?G, 1X/DAY
     Route: 048
  34. FENTANYL. [Concomitant]
     Active Substance: FENTANYL
     Dosage: 50 ?G, 1X/HOUR
  35. MORPHINE [Concomitant]
     Active Substance: MORPHINE
     Dosage: 200 MG, EVERY 12 HOURS
     Route: 048

REACTIONS (19)
  - Atelectasis [Unknown]
  - Tinnitus [Unknown]
  - Deafness [Unknown]
  - Hallucination [Unknown]
  - Staphylococcus test positive [Unknown]
  - Encephalopathy [Unknown]
  - Fall [Unknown]
  - Bronchial secretion retention [Recovering/Resolving]
  - Respiratory failure [Unknown]
  - Pneumonia [Unknown]
  - Hypoxia [Unknown]
  - Hypotension [Unknown]
  - Central nervous system function test abnormal [Fatal]
  - Cerebral infarction [Unknown]
  - Hypoxic-ischaemic encephalopathy [Unknown]
  - Cerebrovascular accident [Unknown]
  - Seizure [Fatal]
  - Cerebrovascular disorder [Unknown]
  - Soft tissue swelling [Unknown]

NARRATIVE: CASE EVENT DATE: 2015
